FAERS Safety Report 4972969-8 (Version None)
Quarter: 2006Q2

REPORT INFORMATION
  Report Type: 
  Country: None (occurrence: None)
  Receive Date: 20060414
  Receipt Date: 20050223
  Transmission Date: 20061013
  Serious: Yes (Death)
  Sender: FDA-Public Use
  Company Number: US-GLAXOSMITHKLINE-A0547269A

PATIENT
  Age: 36 Year
  Sex: Male

DRUGS (2)
  1. PAXIL [Suspect]
     Indication: DEPRESSION
     Dosage: 40MG PER DAY
     Route: 048
     Dates: start: 20001208
  2. ZYPREXA [Suspect]
     Indication: DEPRESSION
     Dosage: 5MG PER DAY
     Route: 048
     Dates: start: 20030207

REACTIONS (8)
  - AKATHISIA [None]
  - ANXIETY [None]
  - COMPLETED SUICIDE [None]
  - CONVERSION DISORDER [None]
  - DECREASED INTEREST [None]
  - DELUSION [None]
  - PARANOIA [None]
  - SLEEP DISORDER [None]
